FAERS Safety Report 4305183-X (Version None)
Quarter: 2004Q1

REPORT INFORMATION
  Report Type: 
  Country: None (occurrence: None)
  Receive Date: 20040225
  Receipt Date: 20040225
  Transmission Date: 20041129
  Serious: Yes (Life-Threatening, Hospitalization)
  Sender: FDA-Public Use
  Company Number: None

PATIENT
  Age: 65 Year
  Sex: Female

DRUGS (7)
  1. PROTAMINE SULFATE [Suspect]
     Dosage: 25 MG IV X 1
     Route: 042
     Dates: start: 20031003
  2. FENTANYL [Concomitant]
  3. MIDAZOLAM HCL [Concomitant]
  4. PANCURONIUM [Concomitant]
  5. EPINEPHRINE [Concomitant]
  6. NICARDIPINE HCL [Concomitant]
  7. APROTININ [Concomitant]

REACTIONS (5)
  - BLOOD PRESSURE DECREASED [None]
  - ENDOCARDITIS ENTEROCOCCAL [None]
  - HYPOGLYCAEMIA [None]
  - MENTAL STATUS CHANGES [None]
  - SHOCK [None]
